FAERS Safety Report 16868940 (Version 1)
Quarter: 2020Q3

REPORT INFORMATION
  Report Type: Report from Study
  Country: US (occurrence: US)
  Receive Date: 20190930
  Receipt Date: 20190930
  Transmission Date: 20201105
  Serious: Yes (Other)
  Sender: FDA-Public Use
  Company Number: US-PFIZER INC-2019408987

PATIENT

DRUGS (4)
  1. LEUCOVORIN CALCIUM. [Suspect]
     Active Substance: LEUCOVORIN CALCIUM
     Indication: ADENOCARCINOMA PANCREAS
     Dosage: 50 MG/M2, CYCLIC (OVER 30 MINUTES ON DAYS 1 AND 8)
     Route: 042
  2. OREGOVOMAB. [Suspect]
     Active Substance: OREGOVOMAB
     Indication: ADENOCARCINOMA PANCREAS
     Dosage: 2 MG, CYCLIC(ON DAY 15 OVER 15 TO 30 MINUTES)
     Route: 042
  3. GEMCITABINE HYDROCHLORIDE. [Suspect]
     Active Substance: GEMCITABINE HYDROCHLORIDE
     Indication: ADENOCARCINOMA PANCREAS
     Dosage: UNK, CYCLIC (3 CYCLES OF 3 WEEK CIT (WK 1 TO 9)
     Route: 042
  4. 5?FU [Suspect]
     Active Substance: FLUOROURACIL
     Indication: ADENOCARCINOMA PANCREAS
     Dosage: 2700 MG/M2, CYCLIC (OVER 24 HOURS ON DAYS 1 AND 8)
     Route: 042

REACTIONS (4)
  - Sepsis [Unknown]
  - Leukopenia [Unknown]
  - Aspartate aminotransferase increased [Unknown]
  - Neutrophil count decreased [Unknown]
